FAERS Safety Report 25983483 (Version 1)
Quarter: 2025Q4

REPORT INFORMATION
  Report Type: Spontaneous
  Country: ID (occurrence: ID)
  Receive Date: 20251031
  Receipt Date: 20251031
  Transmission Date: 20260117
  Serious: Yes (Death, Other)
  Sender: RANBAXY
  Company Number: ID-SUN PHARMACEUTICAL INDUSTRIES INC-2025R1-534146

PATIENT
  Age: 10 Year
  Sex: Female

DRUGS (3)
  1. DOXORUBICIN [Suspect]
     Active Substance: DOXORUBICIN
     Indication: Hepatic sarcoma
     Dosage: UNK
     Route: 065
  2. IFOSFAMIDE [Suspect]
     Active Substance: IFOSFAMIDE
     Indication: Hepatic sarcoma
     Dosage: UNK
     Route: 065
  3. MESNA [Suspect]
     Active Substance: MESNA
     Indication: Hepatic sarcoma
     Dosage: UNK
     Route: 065

REACTIONS (7)
  - Respiratory distress [Fatal]
  - Condition aggravated [Unknown]
  - Anaemia [Unknown]
  - Liver disorder [Unknown]
  - Proteinuria [Unknown]
  - Hypoalbuminaemia [Unknown]
  - Coagulopathy [Unknown]
